FAERS Safety Report 7223667-1 (Version None)
Quarter: 2011Q1

REPORT INFORMATION
  Report Type: 
  Country: None (occurrence: None)
  Receive Date: 20110112
  Receipt Date: 20101004
  Transmission Date: 20110831
  Serious: No
  Sender: FDA-Public Use
  Company Number: US-ALLERGAN-1012732US

PATIENT
  Age: 80 Year
  Sex: Female

DRUGS (2)
  1. THERATEARS                         /00007001/ [Concomitant]
     Dosage: UNK
     Route: 047
  2. RESTASIS [Suspect]
     Indication: DRY EYE
     Dosage: 1 GTT, BID
     Route: 047
     Dates: start: 20100923

REACTIONS (2)
  - EYE IRRITATION [None]
  - ASTHENOPIA [None]
